FAERS Safety Report 17092852 (Version 1)
Quarter: 2019Q4

REPORT INFORMATION
  Report Type: Spontaneous
  Country: CN (occurrence: CN)
  Receive Date: 20191129
  Receipt Date: 20191129
  Transmission Date: 20200122
  Serious: Yes (Hospitalization)
  Sender: FDA-Public Use
  Company Number: CN-PFIZER INC-2019509921

PATIENT
  Age: 49 Year
  Sex: Female

DRUGS (5)
  1. DOXORUBICIN HCL [Suspect]
     Active Substance: DOXORUBICIN HYDROCHLORIDE
     Indication: BREAST CANCER
     Dosage: 94 MG, 1X/DAY
     Route: 041
     Dates: start: 20191113, end: 20191113
  2. STERILE WATER [Concomitant]
     Active Substance: WATER
     Indication: VEHICLE SOLUTION USE
     Dosage: 500 ML, 1X/DAY
     Route: 041
     Dates: start: 20191113, end: 20191113
  3. ENDOXAN [CYCLOPHOSPHAMIDE] [Suspect]
     Active Substance: CYCLOPHOSPHAMIDE
     Indication: BREAST CANCER
     Dosage: 0.94 G, 1X/DAY
     Route: 041
     Dates: start: 20191113, end: 20191113
  4. SODIUM CHLORIDE. [Concomitant]
     Active Substance: SODIUM CHLORIDE
     Indication: VEHICLE SOLUTION USE
     Dosage: 100 ML, 1X/DAY
     Route: 041
     Dates: start: 20191113, end: 20191113
  5. MESNA. [Concomitant]
     Active Substance: MESNA
     Indication: CYSTITIS HAEMORRHAGIC
     Dosage: 0.4 G, 1X/DAY (AT 0, 4 AND 8 HOURS AFTER THE ADMINISTRATION OF CYCLOPHOSPHAMIDE)
     Route: 040
     Dates: start: 20191113, end: 20191115

REACTIONS (2)
  - Haematuria [Unknown]
  - Proteinuria [Unknown]

NARRATIVE: CASE EVENT DATE: 20191114
